FAERS Safety Report 22214748 (Version 1)
Quarter: 2023Q2

REPORT INFORMATION
  Report Type: Report from Study
  Country: US (occurrence: US)
  Receive Date: 20230415
  Receipt Date: 20230415
  Transmission Date: 20230722
  Serious: Yes (Other)
  Sender: FDA-Public Use
  Company Number: US-ABBVIE-4312316

PATIENT
  Sex: Female

DRUGS (1)
  1. HUMIRA [Suspect]
     Active Substance: ADALIMUMAB
     Indication: Psoriasis
     Dosage: 40 MG CITRATE FREE
     Route: 058
     Dates: start: 20220415, end: 20230212

REACTIONS (3)
  - Osteoarthritis [Recovering/Resolving]
  - Gait disturbance [Unknown]
  - Pain [Unknown]
